FAERS Safety Report 10165827 (Version 2)
Quarter: 2014Q2

REPORT INFORMATION
  Report Type: Spontaneous
  Country: US (occurrence: US)
  Receive Date: 20140510
  Receipt Date: 20140510
  Transmission Date: 20141212
  Serious: No
  Sender: FDA-Public Use
  Company Number: US-BRISTOL-MYERS SQUIBB COMPANY-19973635

PATIENT
  Age: 46 Year
  Sex: Male
  Weight: 136.05 kg

DRUGS (2)
  1. BYDUREON 2MG VIAL + SYRINGE [Suspect]
     Indication: TYPE 2 DIABETES MELLITUS
  2. GLIPIZIDE [Suspect]

REACTIONS (3)
  - Injection site haemorrhage [Unknown]
  - Injection site extravasation [Unknown]
  - Blood glucose increased [Unknown]
